FAERS Safety Report 19445252 (Version 1)
Quarter: 2021Q2

REPORT INFORMATION
  Report Type: Spontaneous
  Country: US (occurrence: US)
  Receive Date: 20210621
  Receipt Date: 20210621
  Transmission Date: 20210717
  Serious: No
  Sender: FDA-Public Use
  Company Number: US-SA-2021SA196314

PATIENT
  Age: 26 Year

DRUGS (6)
  1. MYCOPHENOLATE MOFETIL. [Suspect]
     Active Substance: MYCOPHENOLATE MOFETIL
  2. DUPIXENT [Suspect]
     Active Substance: DUPILUMAB
  3. PREDNISONE. [Suspect]
     Active Substance: PREDNISONE
  4. CYCLOSPORINE. [Suspect]
     Active Substance: CYCLOSPORINE
  5. RINVOQ [Suspect]
     Active Substance: UPADACITINIB
     Indication: DERMATITIS ATOPIC
     Route: 048
  6. METHOTREXATE. [Suspect]
     Active Substance: METHOTREXATE

REACTIONS (2)
  - Dermatitis atopic [Unknown]
  - Therapeutic product effect incomplete [Unknown]
